FAERS Safety Report 9827213 (Version 2)
Quarter: 2014Q1

REPORT INFORMATION
  Report Type: Spontaneous
  Country: US (occurrence: US)
  Receive Date: 20140117
  Receipt Date: 20140117
  Transmission Date: 20141002
  Serious: Yes (Death)
  Sender: FDA-Public Use
  Company Number: US-BRISTOL-MYERS SQUIBB COMPANY-19493055

PATIENT
  Age: 56 Year
  Sex: Male

DRUGS (1)
  1. YERVOY [Suspect]
     Indication: METASTATIC MALIGNANT MELANOMA
     Dosage: RECENT DOSE; 03APR2012?4 TABS
     Route: 048
     Dates: start: 20111104

REACTIONS (1)
  - Malignant neoplasm progression [Fatal]
